FAERS Safety Report 6538711-4 (Version None)
Quarter: 2010Q1

REPORT INFORMATION
  Report Type: 
  Country: None (occurrence: None)
  Receive Date: 20100113
  Receipt Date: 20100113
  Transmission Date: 20100710
  Serious: Yes (Hospitalization)
  Sender: FDA-Public Use
  Company Number: None

PATIENT
  Age: 55 Year
  Sex: Female
  Weight: 72.3 kg

DRUGS (2)
  1. TRASTUZUMAB 145MG [Suspect]
     Indication: BREAST CANCER
     Dosage: 145MG WEEKLY IV CYCLE 1
     Route: 042
     Dates: start: 20091228
  2. LAPATINIB 1000MG [Suspect]
     Dosage: 1000MG DAILY PO CYCLE 1
     Route: 048
     Dates: start: 20091228

REACTIONS (4)
  - HAEMORRHAGE [None]
  - HAEMOTHORAX [None]
  - HYPOTENSION [None]
  - PROCEDURAL COMPLICATION [None]
